FAERS Safety Report 8193396-9 (Version None)
Quarter: 2012Q1

REPORT INFORMATION
  Report Type: 
  Country: None (occurrence: None)
  Receive Date: 20120308
  Receipt Date: 20120227
  Transmission Date: 20120608
  Serious: Yes (Hospitalization)
  Sender: FDA-Public Use
  Company Number: US-ELI_LILLY_AND_COMPANY-US201008000413

PATIENT
  Sex: Female

DRUGS (22)
  1. FORTEO [Suspect]
     Dosage: 20 UG, QD
     Route: 065
  2. POTASSIUM CHLORIDE [Concomitant]
  3. BUMEX [Concomitant]
     Indication: FLUID RETENTION
  4. VITAMIN D [Concomitant]
  5. LEVOTHYROXINE SODIUM [Concomitant]
  6. VOLTAREN [Concomitant]
     Dosage: UNK, OTHER
  7. NEXIUM [Concomitant]
  8. LUNESTA [Concomitant]
  9. MILNACIPRAN [Concomitant]
  10. FLONASE [Concomitant]
  11. CELEBREX [Concomitant]
  12. MIRALAX [Concomitant]
     Indication: FAECES HARD
  13. VITAMIN B-12 [Concomitant]
  14. FORTEO [Suspect]
     Indication: OSTEOPOROSIS
     Dosage: 20 UG, QD
     Route: 065
  15. PERCOCET [Concomitant]
  16. PREMPRO [Concomitant]
  17. FORTEO [Suspect]
     Dosage: 20 UG, QD
  18. TRAZODONE HCL [Concomitant]
  19. SENOKOT [Concomitant]
  20. CALTRATE                           /00944201/ [Concomitant]
  21. MULTI-VITAMIN [Concomitant]
  22. VITAMIN B12                        /00056201/ [Concomitant]

REACTIONS (4)
  - RHINORRHOEA [None]
  - GAIT DISTURBANCE [None]
  - BONE PAIN [None]
  - BACK PAIN [None]
